FAERS Safety Report 18812204 (Version 2)
Quarter: 2021Q1

REPORT INFORMATION
  Report Type: Report from Study
  Country: CA (occurrence: CA)
  Receive Date: 20210129
  Receipt Date: 20210210
  Transmission Date: 20210419
  Serious: Yes (Death, Hospitalization)
  Sender: FDA-Public Use
  Company Number: CA-BAXTER-2021BAX002017

PATIENT
  Age: 62 Year
  Sex: Female

DRUGS (3)
  1. SELINEXOR [Suspect]
     Active Substance: SELINEXOR
     Indication: LEIOMYOSARCOMA METASTATIC
     Dosage: DL=1 (3 PATIENTS)
     Route: 048
  2. SELINEXOR [Suspect]
     Active Substance: SELINEXOR
     Dosage: DL=2 (22 PATIENTS)
     Route: 048
  3. DOXIL [Suspect]
     Active Substance: DOXORUBICIN HYDROCHLORIDE
     Indication: LEIOMYOSARCOMA METASTATIC
     Dosage: MAX 6 CYCLES
     Route: 042

REACTIONS (5)
  - Cerebrovascular accident [Unknown]
  - Sepsis [Unknown]
  - Cardiac failure [Fatal]
  - Pneumonia [Unknown]
  - Endocarditis [Unknown]
